FAERS Safety Report 4282403-1 (Version None)
Quarter: 2004Q1

REPORT INFORMATION
  Report Type: 
  Country: None (occurrence: None)
  Receive Date: 20040116
  Receipt Date: 20030122
  Transmission Date: 20041129
  Serious: No
  Sender: FDA-Public Use
  Company Number: 03P-163-0209517-00

PATIENT

DRUGS (1)
  1. MERIDIA [Suspect]
     Indication: OBESITY

REACTIONS (2)
  - CEREBROVASCULAR ACCIDENT [None]
  - HEART INJURY [None]
